FAERS Safety Report 7709259-6 (Version None)
Quarter: 2011Q3

REPORT INFORMATION
  Report Type: 
  Country: None (occurrence: None)
  Receive Date: 20110819
  Receipt Date: 20110811
  Transmission Date: 20111222
  Serious: Yes (Other)
  Sender: FDA-Public Use
  Company Number: 2011SP037992

PATIENT
  Age: 41 Year
  Sex: Female

DRUGS (1)
  1. SAPHRIS [Suspect]
     Indication: PRODUCT USED FOR UNKNOWN INDICATION
     Dosage: ;SL
     Route: 060
     Dates: start: 20110301

REACTIONS (3)
  - BENIGN BREAST NEOPLASM [None]
  - MENTAL DISORDER [None]
  - BREAST INFLAMMATION [None]
